FAERS Safety Report 8165953-7 (Version None)
Quarter: 2012Q1

REPORT INFORMATION
  Report Type: 
  Country: None (occurrence: None)
  Receive Date: 20120227
  Receipt Date: 20111220
  Transmission Date: 20120608
  Serious: No
  Sender: FDA-Public Use
  Company Number: US-MYLANLABS-2011S1024876

PATIENT
  Age: 17 Year
  Sex: Male
  Weight: 72.58 kg

DRUGS (4)
  1. CLARAVIS [Suspect]
     Indication: ACNE
     Route: 048
  2. AMNESTEEM [Suspect]
     Indication: ACNE
     Route: 048
  3. AMNESTEEM [Suspect]
     Route: 048
     Dates: end: 20110101
  4. AMNESTEEM [Suspect]
     Route: 048
     Dates: end: 20110101

REACTIONS (3)
  - LIVER FUNCTION TEST ABNORMAL [None]
  - ASPARTATE AMINOTRANSFERASE INCREASED [None]
  - ALANINE AMINOTRANSFERASE INCREASED [None]
